FAERS Safety Report 8334420-X (Version None)
Quarter: 2012Q2

REPORT INFORMATION
  Report Type: 
  Country: None (occurrence: None)
  Receive Date: 20120503
  Receipt Date: 20110613
  Transmission Date: 20120825
  Serious: No
  Sender: FDA-Public Use
  Company Number: US-BAUSCH-2011BL003868

PATIENT
  Age: 63 Year
  Sex: Female

DRUGS (1)
  1. LOTEMAX [Suspect]
     Indication: EYE DISCHARGE
     Route: 047
     Dates: start: 20110610

REACTIONS (1)
  - EYELID OEDEMA [None]
